FAERS Safety Report 23163288 (Version 1)
Quarter: 2023Q4

REPORT INFORMATION
  Report Type: Spontaneous
  Country: IN (occurrence: IN)
  Receive Date: 20231109
  Receipt Date: 20231109
  Transmission Date: 20240110
  Serious: Yes (Other)
  Sender: FDA-Public Use
  Company Number: IN-PADAGIS-2023PAD01600

PATIENT

DRUGS (1)
  1. CLOBETASOL PROPIONATE [Suspect]
     Active Substance: CLOBETASOL PROPIONATE
     Indication: Pruritus
     Dosage: UNK
     Route: 061

REACTIONS (4)
  - Drug abuse [Unknown]
  - Acarodermatitis [Recovered/Resolved]
  - Product use issue [Unknown]
  - Product use issue [Unknown]
